FAERS Safety Report 16465156 (Version 1)
Quarter: 2019Q2

REPORT INFORMATION
  Report Type: Spontaneous
  Country: US (occurrence: US)
  Receive Date: 20190621
  Receipt Date: 20190621
  Transmission Date: 20190711
  Serious: No
  Sender: FDA-Public Use
  Company Number: US-BAUSCH-BL-2019-017808

PATIENT
  Sex: Female

DRUGS (1)
  1. XIFAXAN [Suspect]
     Active Substance: RIFAXIMIN
     Indication: PRODUCT USED FOR UNKNOWN INDICATION
     Route: 065

REACTIONS (11)
  - Chest pain [Recovering/Resolving]
  - Headache [Recovering/Resolving]
  - Urticaria [Recovering/Resolving]
  - Eye irritation [Recovering/Resolving]
  - Burning sensation [Recovering/Resolving]
  - Dizziness [Recovering/Resolving]
  - Nausea [Recovering/Resolving]
  - Periorbital oedema [Recovering/Resolving]
  - Disorientation [Recovering/Resolving]
  - Diarrhoea [Recovering/Resolving]
  - Rash [Recovering/Resolving]
